FAERS Safety Report 17270368 (Version 2)
Quarter: 2020Q1

REPORT INFORMATION
  Report Type: Report from Study
  Country: CA (occurrence: CA)
  Receive Date: 20200114
  Receipt Date: 20200116
  Transmission Date: 20200409
  Serious: No
  Sender: FDA-Public Use
  Company Number: NVSC2019CA017626

PATIENT
  Sex: Male

DRUGS (9)
  1. COSENTYX [Suspect]
     Active Substance: SECUKINUMAB
     Indication: PSORIATIC ARTHROPATHY
     Dosage: 300 MG, QMO (SENSOREADY PEN))
     Route: 058
     Dates: start: 20190629
  2. PERINDOPRIL ERBUMINE. [Concomitant]
     Active Substance: PERINDOPRIL ERBUMINE
     Indication: BLOOD PRESSURE ABNORMAL
     Dosage: 8 MG, QID
     Route: 048
     Dates: start: 2018
  3. PIROXICAM. [Concomitant]
     Active Substance: PIROXICAM
     Indication: PRODUCT USED FOR UNKNOWN INDICATION
     Dosage: 20 MG, QID
     Route: 048
     Dates: start: 1998
  4. OMEPRAZOLE. [Concomitant]
     Active Substance: OMEPRAZOLE
     Indication: CARDIAC DISORDER
     Dosage: 20 MG, QID
     Route: 048
     Dates: start: 2018
  5. COSENTYX [Suspect]
     Active Substance: SECUKINUMAB
     Indication: ANKYLOSING SPONDYLITIS
  6. ATORVASTATIN [Concomitant]
     Active Substance: ATORVASTATIN
     Indication: BLOOD CHOLESTEROL
     Dosage: 40 MG, QID
     Route: 048
     Dates: start: 2007
  7. ACETYLSALICYLIC ACID [Concomitant]
     Active Substance: ASPIRIN
     Indication: PRODUCT USED FOR UNKNOWN INDICATION
     Dosage: 81 MG, QID
     Route: 048
     Dates: start: 2004
  8. SPIRONOLACTONE. [Concomitant]
     Active Substance: SPIRONOLACTONE
     Indication: HEPATIC CIRRHOSIS
     Dosage: 25 MG, QID
     Route: 048
     Dates: start: 2016
  9. LABETALOL HCL [Concomitant]
     Active Substance: LABETALOL HYDROCHLORIDE
     Indication: PRODUCT USED FOR UNKNOWN INDICATION
     Dosage: 2 DF, QID
     Route: 048
     Dates: start: 2018

REACTIONS (6)
  - Muscle spasms [Not Recovered/Not Resolved]
  - Blood pressure decreased [Unknown]
  - Joint stiffness [Unknown]
  - Arthralgia [Unknown]
  - Blood potassium decreased [Unknown]
  - Fatigue [Unknown]
